FAERS Safety Report 8197455-6 (Version None)
Quarter: 2012Q1

REPORT INFORMATION
  Report Type: 
  Country: None (occurrence: None)
  Receive Date: 20120309
  Receipt Date: 20120228
  Transmission Date: 20120608
  Serious: Yes (Life-Threatening, Hospitalization, Other)
  Sender: FDA-Public Use
  Company Number: FR-JNJFOC-20120202396

PATIENT
  Sex: Female
  Weight: 77 kg

DRUGS (11)
  1. XARELTO [Suspect]
     Indication: KNEE ARTHROPLASTY
     Route: 048
     Dates: start: 20120101, end: 20120119
  2. VOLTAREN [Concomitant]
     Route: 048
  3. FURADANTIN [Concomitant]
  4. ACETAMINOPHEN AND TRAMADOL HCL [Concomitant]
  5. TRAMADOL TYDROCHLORIDE [Concomitant]
  6. XARELTO [Suspect]
     Indication: THROMBOSIS PROPHYLAXIS
     Route: 048
     Dates: start: 20120101, end: 20120119
  7. STRUCTUM [Concomitant]
  8. ATENOLOL [Concomitant]
     Indication: HYPERTENSION
     Route: 048
  9. INDAPAMIDE [Concomitant]
     Indication: HYPERTENSION
  10. COZAAR [Concomitant]
     Indication: HYPERTENSION
  11. NEXIUM [Concomitant]

REACTIONS (5)
  - RESPIRATORY DISORDER [None]
  - PULMONARY EMBOLISM [None]
  - HYPOTENSION [None]
  - MALAISE [None]
  - CARDIOGENIC SHOCK [None]
